FAERS Safety Report 13935816 (Version 1)
Quarter: 2017Q3

REPORT INFORMATION
  Report Type: Spontaneous
  Country: US (occurrence: US)
  Receive Date: 20170903
  Receipt Date: 20170903
  Transmission Date: 20171127
  Serious: Yes (Life-Threatening)
  Sender: FDA-Public Use
  Company Number: None

PATIENT
  Sex: Male
  Weight: 103.5 kg

DRUGS (7)
  1. MODAFINIL. [Concomitant]
     Active Substance: MODAFINIL
  2. ESCITALOPRAM [Concomitant]
     Active Substance: ESCITALOPRAM OXALATE
  3. VALERIAN ROOT [Concomitant]
     Active Substance: VALERIAN
  4. LAMOTRIGINE. [Concomitant]
     Active Substance: LAMOTRIGINE
  5. CLONAZEPAM. [Suspect]
     Active Substance: CLONAZEPAM
     Indication: EPILEPSY
     Dosage: ?          QUANTITY:2 TABLET(S);?
     Route: 048
     Dates: start: 20160116, end: 20160301
  6. DAILY MALTI-VITAMIN [Concomitant]
  7. MELATONIN [Concomitant]
     Active Substance: MELATONIN

REACTIONS (9)
  - Thinking abnormal [None]
  - Fall [None]
  - Gait disturbance [None]
  - Overdose [None]
  - Mood swings [None]
  - Drug dispensing error [None]
  - Impaired driving ability [None]
  - Compulsive shopping [None]
  - Suicide attempt [None]

NARRATIVE: CASE EVENT DATE: 20160201
